FAERS Safety Report 20374385 (Version 1)
Quarter: 2022Q1

REPORT INFORMATION
  Report Type: Spontaneous
  Country: GB (occurrence: GB)
  Receive Date: 20220125
  Receipt Date: 20220125
  Transmission Date: 20220424
  Serious: Yes (Disabling)
  Sender: FDA-Public Use
  Company Number: None

PATIENT
  Age: 32 Year
  Sex: Female
  Weight: 49 kg

DRUGS (3)
  1. CIPROFLOXACIN [Suspect]
     Active Substance: CIPROFLOXACIN
     Indication: Urinary tract infection
     Route: 048
     Dates: start: 20200819, end: 20200822
  2. IBUPROFEN [Concomitant]
     Active Substance: IBUPROFEN
     Indication: Product used for unknown indication
  3. AMOXICILLIN [Concomitant]
     Active Substance: AMOXICILLIN
     Indication: Product used for unknown indication

REACTIONS (39)
  - Restlessness [Unknown]
  - Cardiac discomfort [Unknown]
  - Palpitations [Unknown]
  - Autonomic nervous system imbalance [Unknown]
  - Insomnia [Unknown]
  - Pain [Unknown]
  - Alopecia [Unknown]
  - Muscle atrophy [Unknown]
  - Dry skin [Unknown]
  - Dry eye [Unknown]
  - Neuralgia [Unknown]
  - Crepitations [Unknown]
  - Balance disorder [Unknown]
  - Amnesia [Unknown]
  - Muscle tightness [Unknown]
  - Nail ridging [Unknown]
  - Feeling abnormal [Unknown]
  - Muscle spasms [Unknown]
  - Allergy to chemicals [Unknown]
  - Muscle twitching [Unknown]
  - Tendon injury [Unknown]
  - Fatigue [Unknown]
  - Visual snow syndrome [Unknown]
  - Diplopia [Unknown]
  - Tendonitis [Not Recovered/Not Resolved]
  - Paraesthesia [Unknown]
  - Agitation [Unknown]
  - Blindness transient [Unknown]
  - Hallucination [Unknown]
  - Tinnitus [Unknown]
  - Anxiety [Unknown]
  - Tremor [Unknown]
  - Tendon disorder [Unknown]
  - Rash [Unknown]
  - Back pain [Unknown]
  - Arthralgia [Unknown]
  - Myalgia [Unknown]
  - Hypoaesthesia [Unknown]
  - Asthenia [Unknown]

NARRATIVE: CASE EVENT DATE: 20200819
